FAERS Safety Report 7430041-1 (Version None)
Quarter: 2011Q2

REPORT INFORMATION
  Report Type: 
  Country: None (occurrence: None)
  Receive Date: 20110419
  Receipt Date: 20110419
  Transmission Date: 20111010
  Serious: Yes (Life-Threatening, Hospitalization, Other)
  Sender: FDA-Public Use
  Company Number: None

PATIENT
  Age: 37 Year
  Sex: Female
  Weight: 54.4316 kg

DRUGS (1)
  1. LISINOPRIL AND HYDROCHLOROTHIAZIDE [Suspect]
     Indication: HYPERTENSION
     Dosage: 10-12 ONCE PER DAY PO
     Route: 048
     Dates: start: 20110207, end: 20110407

REACTIONS (3)
  - HYPONATRAEMIA [None]
  - RENAL DISORDER [None]
  - LIVER INJURY [None]
